FAERS Safety Report 23752280 (Version 2)
Quarter: 2024Q2

REPORT INFORMATION
  Report Type: Spontaneous
  Country: TR (occurrence: TR)
  Receive Date: 20240417
  Receipt Date: 20240603
  Transmission Date: 20240715
  Serious: Yes (Other)
  Sender: FDA-Public Use
  Company Number: TR-ELI_LILLY_AND_COMPANY-TR202404004631

PATIENT
  Age: 51 Year
  Sex: Female

DRUGS (2)
  1. IXEKIZUMAB [Suspect]
     Active Substance: IXEKIZUMAB
     Indication: Product used for unknown indication
     Dosage: UNK UNK, UNKNOWN
     Route: 065
     Dates: start: 2022
  2. COVID-19 VACCINE [Concomitant]
     Indication: COVID-19
     Dosage: UNK UNK, UNKNOWN
     Route: 065

REACTIONS (2)
  - Breast cancer [Not Recovered/Not Resolved]
  - Mass [Not Recovered/Not Resolved]
